FAERS Safety Report 9564966 (Version 1)
Quarter: 2013Q3

REPORT INFORMATION
  Report Type: Spontaneous
  Country: JO (occurrence: JO)
  Receive Date: 20130930
  Receipt Date: 20130930
  Transmission Date: 20140515
  Serious: Yes (Other)
  Sender: FDA-Public Use
  Company Number: PHHY2013JO106600

PATIENT
  Age: 28 Year
  Sex: Male

DRUGS (2)
  1. NEORAL [Suspect]
     Indication: RENAL TRANSPLANT
     Dosage: 150 MG, BID
     Dates: start: 20110214, end: 20130826
  2. MYFORTIC [Concomitant]
     Indication: RENAL TRANSPLANT
     Route: 048
     Dates: start: 20110214

REACTIONS (1)
  - Hallucinations, mixed [Recovered/Resolved]
